FAERS Safety Report 21415834 (Version 1)
Quarter: 2022Q4

REPORT INFORMATION
  Report Type: Spontaneous
  Country: FR (occurrence: FR)
  Receive Date: 20221006
  Receipt Date: 20221006
  Transmission Date: 20230113
  Serious: Yes (Death, Hospitalization, Other)
  Sender: FDA-Public Use
  Company Number: FR-AMGEN-FRASP2022167270

PATIENT
  Age: 70 Year
  Sex: Female

DRUGS (13)
  1. MVASI [Suspect]
     Active Substance: BEVACIZUMAB-AWWB
     Indication: Adenocarcinoma metastatic
     Dosage: 275 MILLIGRAM
     Route: 065
     Dates: start: 20220913
  2. MORPHINE [Concomitant]
     Active Substance: MORPHINE
     Dosage: 250 MILLIGRAM
  3. BROMAZEPAM [Concomitant]
     Active Substance: BROMAZEPAM
     Dosage: UNK UNK, QD (1 TABLET IN THE EVENING)
  4. ACETAMINOPHEN [Concomitant]
     Active Substance: ACETAMINOPHEN
     Dosage: UNK
  5. CETIRIZINE [Concomitant]
     Active Substance: CETIRIZINE HYDROCHLORIDE
     Dosage: 10 MILLIGRAM, BID (MORNING AND EVENING)
  6. ONDANSETRON [Concomitant]
     Active Substance: ONDANSETRON
     Dosage: 4 MILLIGRAM
  7. PREDNISOLONE [Concomitant]
     Active Substance: PREDNISOLONE
     Dosage: 4 TABLETS IN THE MORNING
  8. LOPERAMIDE [Concomitant]
     Active Substance: LOPERAMIDE
     Dosage: 2 MILLIGRAM, TID (IN THE MORNING, AT NOON AND IN THE EVENING)
  9. LOVENOX [Concomitant]
     Active Substance: ENOXAPARIN SODIUM
     Dosage: 4000 UI, QD
  10. MICONAZOLE [Concomitant]
     Active Substance: MICONAZOLE
     Dosage: 50 MILLIGRAM, QD, IN THE MORNING
  11. PROPRANOLOL HYDROCHLORIDE [Concomitant]
     Active Substance: PROPRANOLOL HYDROCHLORIDE
     Dosage: 40 MILLIGRAM, QD, IN THE MORNING
  12. ATORVASTATIN [Concomitant]
     Active Substance: ATORVASTATIN
     Dosage: 40 MILLIGRAM, QD, IN THE EVENING
  13. FLUOROURACIL\LEUCOVORIN CALCIUM\OXALIPLATIN [Concomitant]
     Active Substance: FLUOROURACIL\LEUCOVORIN CALCIUM\OXALIPLATIN
     Dosage: UNK
     Dates: start: 20220913

REACTIONS (2)
  - Death [Fatal]
  - Small intestinal perforation [Unknown]

NARRATIVE: CASE EVENT DATE: 20220901
